FAERS Safety Report 18962561 (Version 2)
Quarter: 2021Q1

REPORT INFORMATION
  Report Type: Spontaneous
  Country: GB (occurrence: GB)
  Receive Date: 20210303
  Receipt Date: 20210318
  Transmission Date: 20210420
  Serious: Yes (Other)
  Sender: FDA-Public Use
  Company Number: GB-ORGANON-O2102GBR007961

PATIENT
  Age: 61 Year
  Sex: Female
  Weight: 79.37 kg

DRUGS (1)
  1. MIRTAZAPINE. [Suspect]
     Active Substance: MIRTAZAPINE
     Indication: DEPRESSION
     Dosage: 30 MG
     Route: 048
     Dates: start: 20210220, end: 20210220

REACTIONS (2)
  - Hypersomnia [Recovering/Resolving]
  - Vertigo [Not Recovered/Not Resolved]

NARRATIVE: CASE EVENT DATE: 20210220
